FAERS Safety Report 6475207-2 (Version None)
Quarter: 2009Q4

REPORT INFORMATION
  Report Type: 
  Country: None (occurrence: None)
  Receive Date: 20091204
  Receipt Date: 20090708
  Transmission Date: 20100525
  Serious: Yes (Hospitalization)
  Sender: FDA-Public Use
  Company Number: US-ELI_LILLY_AND_COMPANY-US200904001059

PATIENT
  Sex: Female

DRUGS (9)
  1. CYMBALTA [Suspect]
     Indication: TENSION
     Dosage: 30 MG, DAILY (1/D)
     Dates: start: 20081001
  2. CYMBALTA [Suspect]
     Dosage: 60 MG, DAILY (1/D)
  3. CYMBALTA [Suspect]
     Dosage: 30 MG, DAILY (1/D)
  4. XOPENEX [Concomitant]
  5. OMEPRAZOLE [Concomitant]
  6. VICODIN [Concomitant]
  7. XANAX [Concomitant]
  8. LEVAQUIN [Concomitant]
  9. PREDNISONE [Concomitant]

REACTIONS (7)
  - BLOOD PRESSURE INCREASED [None]
  - FEELING ABNORMAL [None]
  - PULMONARY EMBOLISM [None]
  - TREMOR [None]
  - VISION BLURRED [None]
  - VISUAL IMPAIRMENT [None]
  - VITREOUS FLOATERS [None]
